FAERS Safety Report 8830308 (Version 1)
Quarter: 2012Q4

REPORT INFORMATION
  Report Type: 
  Country: US (occurrence: US)
  Receive Date: 20121009
  Receipt Date: 20121009
  Transmission Date: 20130627
  Serious: Yes (Other)
  Sender: FDA-Public Use
  Company Number: US-PFIZER INC-2012247839

PATIENT
  Age: 66 Year
  Sex: Male
  Weight: 68.03 kg

DRUGS (11)
  1. LYRICA [Suspect]
     Indication: NERVE INJURY
     Dosage: 75 mg, 2x/day
     Dates: start: 20121002
  2. GABAPENTIN [Suspect]
     Indication: NERVE INJURY
     Dosage: 300 mg, 2x/day
     Dates: start: 20120913
  3. GABAPENTIN [Suspect]
     Dosage: 300 mg, 3x/day
     Dates: start: 2012, end: 20121002
  4. LIPITOR [Concomitant]
     Indication: BLOOD CHOLESTEROL INCREASED
     Dosage: 10 mg, daily
     Dates: start: 2002
  5. NORTRIPTYLINE [Concomitant]
     Indication: PAIN
     Dosage: 50 mg, Daily
     Dates: start: 20120918
  6. NORTRIPTYLINE [Concomitant]
     Dosage: 75 mg, Daily
     Dates: start: 20121004
  7. PREDNISONE [Concomitant]
     Indication: EAR PAIN
     Dosage: 60 mg, UNK
     Dates: start: 20120825
  8. PREDNISONE [Concomitant]
     Dosage: 40 mg, UNK
     Dates: start: 2012
  9. PREDNISONE [Concomitant]
     Dosage: 20 mg, UNK
     Dates: start: 2012
  10. PREDNISONE [Concomitant]
     Dosage: 10 mg, UNK
     Dates: start: 2012, end: 2012
  11. VALTREX [Concomitant]
     Indication: EAR PAIN
     Dosage: 1 g, daily
     Dates: start: 20120825

REACTIONS (2)
  - VIIth nerve paralysis [Unknown]
  - Drug ineffective [Unknown]
